FAERS Safety Report 22639993 (Version 6)
Quarter: 2023Q4

REPORT INFORMATION
  Report Type: Report from Study
  Country: US (occurrence: US)
  Receive Date: 20230626
  Receipt Date: 20231115
  Transmission Date: 20240110
  Serious: No
  Sender: FDA-Public Use
  Company Number: US-002147023-NVSC2023US143479

PATIENT
  Age: 67 Year
  Sex: Female

DRUGS (2)
  1. ENTRESTO [Suspect]
     Active Substance: SACUBITRIL\VALSARTAN
     Indication: Cardiac failure
     Dosage: 1 DOSAGE FORM, BID
     Route: 048
     Dates: start: 202306
  2. FUROSEMIDE [Suspect]
     Active Substance: FUROSEMIDE
     Indication: Product used for unknown indication
     Dosage: UNK
     Route: 048

REACTIONS (19)
  - Dyspnoea exertional [Not Recovered/Not Resolved]
  - Disorientation [Unknown]
  - Joint swelling [Recovering/Resolving]
  - Peripheral swelling [Recovering/Resolving]
  - Pollakiuria [Unknown]
  - Dizziness [Unknown]
  - Cough [Recovered/Resolved]
  - Alopecia [Unknown]
  - Influenza like illness [Recovered/Resolved]
  - Back pain [Unknown]
  - Arthralgia [Unknown]
  - Joint stiffness [Unknown]
  - Sensitivity to weather change [Unknown]
  - Weight decreased [Recovering/Resolving]
  - Movement disorder [Unknown]
  - Depressive symptom [Unknown]
  - Seasonal affective disorder [Unknown]
  - Fatigue [Unknown]
  - Inappropriate schedule of product administration [Unknown]

NARRATIVE: CASE EVENT DATE: 20230601
